FAERS Safety Report 4417387-6 (Version None)
Quarter: 2004Q3

REPORT INFORMATION
  Report Type: 
  Country: None (occurrence: None)
  Receive Date: 20040802
  Receipt Date: 20040716
  Transmission Date: 20050211
  Serious: No
  Sender: FDA-Public Use
  Company Number: 233608K04USA

PATIENT
  Age: 47 Year
  Sex: Female

DRUGS (2)
  1. REBIF [Suspect]
     Indication: MULTIPLE SCLEROSIS
     Dosage: 44 MCG, SUBCUTANEOUS;   22 MCG, SUBCUTANEOUS
     Route: 058
     Dates: start: 20030108, end: 20040101
  2. REBIF [Suspect]
     Indication: MULTIPLE SCLEROSIS
     Dosage: 44 MCG, SUBCUTANEOUS;   22 MCG, SUBCUTANEOUS
     Route: 058
     Dates: start: 20040101, end: 20040701

REACTIONS (1)
  - MEDICATION ERROR [None]
